FAERS Safety Report 8230864-5 (Version None)
Quarter: 2012Q1

REPORT INFORMATION
  Report Type: 
  Country: None (occurrence: None)
  Receive Date: 20120323
  Receipt Date: 20120315
  Transmission Date: 20120608
  Serious: Yes (Other)
  Sender: FDA-Public Use
  Company Number: US-BRISTOL-MYERS SQUIBB COMPANY-16457616

PATIENT
  Age: 76 Year
  Sex: Male

DRUGS (1)
  1. YERVOY [Suspect]
     Dosage: 1DF= SECOND INF 24FEB12

REACTIONS (2)
  - INFLUENZA LIKE ILLNESS [None]
  - VOCAL CORD PARALYSIS [None]
